FAERS Safety Report 7229355-X (Version None)
Quarter: 2011Q1

REPORT INFORMATION
  Report Type: 
  Country: None (occurrence: None)
  Receive Date: 20110117
  Receipt Date: 20110103
  Transmission Date: 20110831
  Serious: Yes (Hospitalization, Congenital Anomaly)
  Sender: FDA-Public Use
  Company Number: A0792564A

PATIENT
  Sex: Female
  Weight: 1.6 kg

DRUGS (25)
  1. NITROFURANTOIN [Concomitant]
     Dates: start: 20070410
  2. PRENATAL VITAMINS [Concomitant]
  3. LEVAQUIN [Concomitant]
     Dates: start: 20070306
  4. CEFTIN [Concomitant]
     Dates: start: 20070605
  5. LEVAQUIN [Concomitant]
     Dates: start: 20070306
  6. ATENOLOL [Concomitant]
     Dates: start: 20060101, end: 20070101
  7. COTRIM [Concomitant]
     Dates: start: 20070413
  8. ZOLOFT [Concomitant]
     Dates: start: 20070520, end: 20071101
  9. FLEXERIL [Concomitant]
     Dates: start: 20070306
  10. TERCONAZOLE [Concomitant]
     Dates: start: 20071018
  11. AUGMENTIN '125' [Concomitant]
  12. PAROXETINE HYDROCHLORIDE [Suspect]
     Indication: DEPRESSION
     Dosage: 40MG PER DAY
     Dates: start: 20070131, end: 20070614
  13. TRAZODONE [Concomitant]
     Dates: start: 20070302, end: 20070404
  14. PROVENTIL [Concomitant]
     Dates: start: 20070612
  15. DIGOXIN [Concomitant]
     Dates: start: 20071112
  16. METRONIDAZOLE [Concomitant]
     Dates: start: 20070730
  17. CIPROFLOXACIN [Concomitant]
     Dates: start: 20070306
  18. PROVENTIL [Concomitant]
     Dates: start: 20070612
  19. CLARITIN-D [Concomitant]
     Dates: start: 20070605
  20. ZOLOFT [Concomitant]
  21. CYCLOBENZAPRINE [Concomitant]
     Dates: start: 20070306
  22. LORATADINE [Concomitant]
     Dates: start: 20070605
  23. ATENOLOL [Concomitant]
  24. CEFUROXIME [Concomitant]
     Dates: start: 20070605
  25. ZYRTEC [Concomitant]

REACTIONS (4)
  - CONGENITAL ANOMALY [None]
  - CONGENITAL AORTIC STENOSIS [None]
  - ATRIAL SEPTAL DEFECT [None]
  - DRUG EXPOSURE DURING PREGNANCY [None]
